FAERS Safety Report 7104717-X (Version None)
Quarter: 2010Q4

REPORT INFORMATION
  Report Type: 
  Country: None (occurrence: None)
  Receive Date: 20101116
  Receipt Date: 20101108
  Transmission Date: 20110411
  Serious: Yes (Other)
  Sender: FDA-Public Use
  Company Number: US-US-EMD SERONO, INC.-7026629

PATIENT
  Sex: Male

DRUGS (3)
  1. REBIF [Suspect]
     Indication: PRODUCT USED FOR UNKNOWN INDICATION
     Route: 058
     Dates: start: 20070101
  2. REBIF [Suspect]
     Route: 058
     Dates: start: 20090310
  3. PERCOCET [Concomitant]
     Indication: PREMEDICATION

REACTIONS (2)
  - PNEUMONIA [None]
  - WEIGHT DECREASED [None]
